FAERS Safety Report 9184408 (Version 4)
Quarter: 2014Q1

REPORT INFORMATION
  Report Type: Report from Study
  Country: AT (occurrence: AT)
  Receive Date: 20130322
  Receipt Date: 20140213
  Transmission Date: 20141002
  Serious: Yes (Life-Threatening, Hospitalization)
  Sender: FDA-Public Use
  Company Number: AT-ROCHE-1204942

PATIENT
  Age: 62 Year
  Sex: Female
  Weight: 63 kg

DRUGS (8)
  1. BEVACIZUMAB [Suspect]
     Indication: HER-2 POSITIVE BREAST CANCER
     Dosage: LAST ADMINISTERED DOSE: 02/MAR/2013
     Route: 042
     Dates: start: 20130302
  2. TRASTUZUMAB [Suspect]
     Indication: HER-2 POSITIVE BREAST CANCER
     Dosage: LAST ADMINISTERED DOSE: 02/MAR/2013
     Route: 042
     Dates: start: 20130302
  3. LIPOSOMAL DOXORUBICIN [Suspect]
     Indication: HER-2 POSITIVE BREAST CANCER
     Dosage: LAST ADMINISTERED DOSE: 02/MAR/2013
     Route: 042
     Dates: start: 20130302
  4. DOCETAXEL [Suspect]
     Indication: HER-2 POSITIVE BREAST CANCER
     Dosage: LAST ADMINISTERED DOSE: 02/MAR/2013
     Route: 042
     Dates: start: 20130302
  5. TAZONAM [Concomitant]
     Route: 065
  6. TAZONAM [Concomitant]
  7. ACEMIN [Concomitant]
  8. PANTOLOC [Concomitant]
     Route: 065

REACTIONS (5)
  - Sepsis [Recovered/Resolved with Sequelae]
  - Large intestine perforation [Recovered/Resolved with Sequelae]
  - Renal failure acute [Unknown]
  - Gastrointestinal fistula [Unknown]
  - Abdominal abscess [Unknown]
